FAERS Safety Report 6971491-7 (Version None)
Quarter: 2010Q3

REPORT INFORMATION
  Report Type: 
  Country: None (occurrence: None)
  Receive Date: 20100903
  Receipt Date: 20100831
  Transmission Date: 20110219
  Serious: Yes (Hospitalization)
  Sender: FDA-Public Use
  Company Number: USA/USA/10/0015537

PATIENT
  Age: 62 Year
  Sex: Male
  Weight: 93 kg

DRUGS (9)
  1. GLIMEPIRIDE [Suspect]
     Indication: TYPE 2 DIABETES MELLITUS
     Dosage: 4 MG, 1 IN 1 D, ORAL
     Route: 048
     Dates: start: 20091123, end: 20100614
  2. METFORMIN HCL [Suspect]
     Indication: TYPE 2 DIABETES MELLITUS
     Dosage: 850 MG, 2 IN 1 D, ORAL, 1000 MG, 2 IN 1 D, ORAL, 1000 MG, 2 IN 1 D, ORAL
     Route: 048
     Dates: start: 20090630, end: 20091123
  3. METFORMIN HCL [Suspect]
     Indication: TYPE 2 DIABETES MELLITUS
     Dosage: 850 MG, 2 IN 1 D, ORAL, 1000 MG, 2 IN 1 D, ORAL, 1000 MG, 2 IN 1 D, ORAL
     Route: 048
     Dates: start: 20091123, end: 20100614
  4. METFORMIN HCL [Suspect]
     Indication: TYPE 2 DIABETES MELLITUS
     Dosage: 850 MG, 2 IN 1 D, ORAL, 1000 MG, 2 IN 1 D, ORAL, 1000 MG, 2 IN 1 D, ORAL
     Route: 048
     Dates: start: 20100623
  5. TRIAL DRUG (ALL OTHER THERAPEUTIC PRODUCTS) [Suspect]
     Indication: PRODUCT USED FOR UNKNOWN INDICATION
  6. GUANFACINE HYDROCHLORIDE [Concomitant]
  7. LISINOPRIL [Concomitant]
  8. LEXAPRO [Concomitant]
  9. SOMA [Concomitant]

REACTIONS (6)
  - DEHYDRATION [None]
  - DIZZINESS [None]
  - FLUID INTAKE REDUCED [None]
  - HYPERHIDROSIS [None]
  - HYPOTENSION [None]
  - RENAL FAILURE ACUTE [None]
